FAERS Safety Report 5963169-3 (Version None)
Quarter: 2008Q4

REPORT INFORMATION
  Report Type: 
  Country: None (occurrence: None)
  Receive Date: 20081119
  Receipt Date: 20080801
  Transmission Date: 20090506
  Serious: No
  Sender: FDA-Public Use
  Company Number: WAES 0808USA00240

PATIENT
  Age: 68 Year
  Sex: Male

DRUGS (5)
  1. JANUVIA [Suspect]
     Indication: TYPE 2 DIABETES MELLITUS
     Dosage: 50 MG/BID/PO
     Route: 048
     Dates: start: 20080728
  2. ATIVAN [Concomitant]
  3. MONOPRIL [Concomitant]
  4. NEXIUM [Concomitant]
  5. ASPIRIN [Concomitant]

REACTIONS (2)
  - DRUG INEFFECTIVE [None]
  - INAPPROPRIATE SCHEDULE OF DRUG ADMINISTRATION [None]
